FAERS Safety Report 15117444 (Version 2)
Quarter: 2018Q3

REPORT INFORMATION
  Report Type: Spontaneous
  Country: NL (occurrence: NL)
  Receive Date: 20180706
  Receipt Date: 20180725
  Transmission Date: 20181010
  Serious: Yes (Other)
  Sender: FDA-Public Use
  Company Number: NL-TEVA-2018-NL-922642

PATIENT
  Age: 17 Year
  Sex: Male
  Weight: 90 kg

DRUGS (7)
  1. KALIUMCHLORIDE INF 1MMOL/ML [Concomitant]
     Dates: start: 20180522
  2. SALBUTAMOL/IPRATROPIUM VERNEVELING [Concomitant]
     Dates: start: 20180521
  3. PREDNISOLON INJECTIEPOEDER 25 MG FL [Concomitant]
     Dosage: 60 MILLIGRAM DAILY; 1X PER DAG 60 MILLIGRAM
     Dates: start: 20180521
  4. DESLORATADINE TABLET 5 MG [Concomitant]
     Dosage: ONE?OFF
     Dates: start: 20180522
  5. BUDESONIDE VERNEVELING [Concomitant]
     Dates: start: 20180521
  6. MAGNESIUMSULFAAT INJECTIEVLOEISTOF 100MG/ML [Concomitant]
     Dosage: 2 GRAM DAILY; 1X PER DAG 2 GRAM IV
     Dates: start: 20180521
  7. SALBUTAMOL VOOR INJECTIE/INFUSIE [Suspect]
     Active Substance: ALBUTEROL
     Indication: ASTHMA
     Dosage: START 0,1 MICROG / KG / MIN, EVERY 10?15MIN: INCREASED BY 0,1 TO 0,4 MICROG / KG / MIN
     Route: 065
     Dates: start: 20180522, end: 20180522

REACTIONS (1)
  - Lactic acidosis [Recovered/Resolved]

NARRATIVE: CASE EVENT DATE: 20180522
